FAERS Safety Report 9646891 (Version 1)
Quarter: 2013Q4

REPORT INFORMATION
  Report Type: Spontaneous
  Country: US (occurrence: US)
  Receive Date: 20131027
  Receipt Date: 20131027
  Transmission Date: 20140711
  Serious: No
  Sender: FDA-Public Use
  Company Number: US-PURDUE-USA-2013-0101313

PATIENT
  Age: 48 Year
  Sex: Female
  Weight: 99.32 kg

DRUGS (10)
  1. OXYCONTIN (NDA 22-272) [Suspect]
     Indication: PAIN
     Dosage: 20 MG, BID
     Route: 048
     Dates: start: 201301
  2. PERCOCET                           /00867901/ [Concomitant]
     Indication: BREAKTHROUGH PAIN
     Dosage: 1 TABLET, PRN
     Route: 048
  3. TOPAMAX [Concomitant]
     Indication: MIGRAINE
     Dosage: 25 MG, TID
     Route: 048
     Dates: start: 2010
  4. ELAVIL                             /00002202/ [Concomitant]
     Indication: PRODUCT USED FOR UNKNOWN INDICATION
     Dosage: 100 MG, HS
     Route: 048
     Dates: start: 2010
  5. ZOCOR [Concomitant]
     Indication: BLOOD CHOLESTEROL
     Dosage: 80 MG, DAILY
     Route: 048
     Dates: start: 2010
  6. LISINOPRIL HCT                     /01613901/ [Concomitant]
     Indication: BLOOD PRESSURE
     Dosage: 1 TABLET, DAILY
     Route: 048
     Dates: start: 2003
  7. PROZAC [Concomitant]
     Indication: DEPRESSION
     Dosage: 40 MG, DAILY
     Route: 048
     Dates: start: 1998
  8. OGEN [Concomitant]
     Indication: HORMONE REPLACEMENT THERAPY
     Dosage: 1.25 MG, DAILY
     Route: 048
     Dates: start: 1984
  9. PRILOSEC                           /00661201/ [Concomitant]
     Indication: REFLUX GASTRITIS
     Dosage: 20 MG, BID
     Route: 048
  10. CORTICOSTEROIDS [Concomitant]
     Indication: BACK DISORDER
     Dosage: UNK
     Route: 008
     Dates: start: 201303, end: 201303

REACTIONS (2)
  - Weight decreased [Not Recovered/Not Resolved]
  - Breakthrough pain [Unknown]
